FAERS Safety Report 7497562-7 (Version None)
Quarter: 2011Q2

REPORT INFORMATION
  Report Type: 
  Country: None (occurrence: None)
  Receive Date: 20110523
  Receipt Date: 20110517
  Transmission Date: 20111010
  Serious: Yes (Other)
  Sender: FDA-Public Use
  Company Number: US-PFIZER INC-2009268196

PATIENT
  Sex: Female
  Weight: 88.4 kg

DRUGS (11)
  1. DARVOCET [Concomitant]
     Dosage: UNK
  2. EFFEXOR XR [Suspect]
     Indication: FIBROMYALGIA
     Dosage: 75 MG, 2X/DAY
     Route: 048
     Dates: start: 20050101, end: 20090101
  3. HYDRODIURIL [Concomitant]
     Dosage: 25 MG, 1X/DAY
  4. HYDROCHLOROTHIAZIDE [Concomitant]
     Indication: HYPERTENSION
     Dosage: UNK
  5. EFFEXOR [Suspect]
     Dosage: UNK
     Route: 048
     Dates: end: 20090101
  6. LYRICA [Suspect]
     Indication: FIBROMYALGIA
     Dosage: UNK
     Route: 048
     Dates: start: 20090801
  7. LISINOPRIL [Suspect]
     Indication: BLOOD PRESSURE
     Dosage: UNK
  8. CYMBALTA [Suspect]
     Indication: FIBROMYALGIA
     Dosage: UNK
  9. DARVOCET [Concomitant]
     Indication: ARTHRITIS
     Dosage: UNK
     Route: 048
     Dates: end: 20090101
  10. LYRICA [Suspect]
     Indication: PAIN
     Dosage: 150 MG, 2X/DAY
     Route: 048
     Dates: start: 20090801
  11. PREDNISONE [Suspect]
     Indication: ASTHMA
     Dosage: 2 ROUNDS

REACTIONS (14)
  - MYALGIA [None]
  - ASTHMA [None]
  - PRURITUS [None]
  - EYE PAIN [None]
  - PNEUMONIA [None]
  - WEIGHT INCREASED [None]
  - HEADACHE [None]
  - EYE INFECTION [None]
  - VISION BLURRED [None]
  - PAIN [None]
  - DRUG INEFFECTIVE [None]
  - CATARACT [None]
  - DRUG WITHDRAWAL SYNDROME [None]
  - ANXIETY [None]
